FAERS Safety Report 5757516-5 (Version None)
Quarter: 2008Q2

REPORT INFORMATION
  Report Type: 
  Country: None (occurrence: None)
  Receive Date: 20080603
  Receipt Date: 20080522
  Transmission Date: 20081010
  Serious: Yes (Hospitalization)
  Sender: FDA-Public Use
  Company Number: US-ELI_LILLY_AND_COMPANY-US200805004579

PATIENT
  Sex: Female

DRUGS (1)
  1. EVISTA [Suspect]
     Dosage: 60 MG, UNK
     Dates: start: 20040101, end: 20070401

REACTIONS (7)
  - BALANCE DISORDER [None]
  - CERUMEN IMPACTION [None]
  - FALL [None]
  - LABYRINTHITIS [None]
  - TINNITUS [None]
  - VESTIBULAR DISORDER [None]
  - VISUAL DISTURBANCE [None]
